FAERS Safety Report 4955383-0 (Version None)
Quarter: 2006Q1

REPORT INFORMATION
  Report Type: 
  Country: None (occurrence: None)
  Receive Date: 20060328
  Receipt Date: 20040901
  Transmission Date: 20060701
  Serious: Yes (Disabling)
  Sender: FDA-Public Use
  Company Number: DE-BRISTOL-MYERS SQUIBB COMPANY-13314430

PATIENT
  Age: 27 Year
  Sex: Female
  Weight: 61 kg

DRUGS (6)
  1. VIDEX [Suspect]
     Indication: HIV INFECTION
     Dosage: TAKEN FOR THE PREVIOUS 14 MONTHS, DISCONTINUED IN JAN-2004
     Dates: end: 20040101
  2. ZERIT [Suspect]
     Indication: HIV INFECTION
     Dosage: TAKEN FOR THE PREVIOUS 14 MONTHS, DISCONTINUED IN JAN-2004
     Dates: end: 20040101
  3. LOPINAVIR [Concomitant]
     Indication: HIV INFECTION
     Dosage: TAKEN FOR THE PREVIOUS 14 MONTHS, DISCONTINUED IN JAN-2004
     Dates: end: 20040101
  4. RITONAVIR [Concomitant]
     Indication: HIV INFECTION
     Dosage: TAKEN FOR THE PREVIOUS 14 MONTHS, DISCONTINUED IN JAN-2004
     Dates: end: 20040101
  5. RIBAVIRIN [Concomitant]
     Indication: HEPATITIS C
  6. PEGASYS [Concomitant]
     Indication: HEPATITIS C

REACTIONS (2)
  - LIPOATROPHY [None]
  - WRIST FRACTURE [None]
